FAERS Safety Report 10012644 (Version 2)
Quarter: 2014Q2

REPORT INFORMATION
  Report Type: Spontaneous
  Country: PT (occurrence: PT)
  Receive Date: 20140314
  Receipt Date: 20140528
  Transmission Date: 20141212
  Serious: Yes (Hospitalization, Other)
  Sender: FDA-Public Use
  Company Number: PHHY2014PT030103

PATIENT
  Sex: Male

DRUGS (1)
  1. GILENYA [Suspect]
     Indication: MULTIPLE SCLEROSIS
     Dosage: 1 DF, QD
     Route: 048
     Dates: start: 201311, end: 201403

REACTIONS (12)
  - Convulsion [Unknown]
  - Cerebellar syndrome [Unknown]
  - Stupor [Unknown]
  - Paraesthesia [Unknown]
  - Consciousness fluctuating [Recovering/Resolving]
  - Aphasia [Recovering/Resolving]
  - Speech disorder [Unknown]
  - Encephalopathy [Unknown]
  - Demyelination [Unknown]
  - CSF protein abnormal [Unknown]
  - Pyrexia [Unknown]
  - Diarrhoea [Unknown]
